FAERS Safety Report 4635685-8 (Version None)
Quarter: 2005Q2

REPORT INFORMATION
  Report Type: 
  Country: None (occurrence: None)
  Receive Date: 20050414
  Receipt Date: 20050406
  Transmission Date: 20051028
  Serious: Yes (Other)
  Sender: FDA-Public Use
  Company Number: GBWYE201615NOV04

PATIENT
  Age: 39 Year
  Sex: Female

DRUGS (6)
  1. ENBREL [Suspect]
     Indication: RHEUMATOID ARTHRITIS
     Dosage: 25 MG 2X PER 1 WK SC
     Route: 058
  2. ENREL (ETANERCEPT, INJECTION, 0) [Suspect]
     Dosage: 150MG ORAL
     Route: 048
  3. OMEPRAZOLE [Concomitant]
  4. TRAMADOL HCL [Concomitant]
  5. AMITRIPTYLINE HCL [Concomitant]
  6. LORATADINE [Concomitant]

REACTIONS (3)
  - ABORTION SPONTANEOUS [None]
  - DRUG EXPOSURE DURING PREGNANCY [None]
  - PREGNANCY [None]
